FAERS Safety Report 4279104-2 (Version None)
Quarter: 2004Q1

REPORT INFORMATION
  Report Type: 
  Country: None (occurrence: None)
  Receive Date: 20040122
  Receipt Date: 20040107
  Transmission Date: 20041129
  Serious: Yes (Other)
  Sender: FDA-Public Use
  Company Number: 180356

PATIENT
  Age: 27 Year
  Sex: Male
  Weight: 65.7716 kg

DRUGS (6)
  1. AVONEX [Suspect]
     Indication: MULTIPLE SCLEROSIS
     Dosage: 30 MCG QW IM
     Route: 030
     Dates: start: 20030911, end: 20030916
  2. BACLOFEN [Concomitant]
  3. PREDNISONE [Concomitant]
  4. ZOCOR [Concomitant]
  5. AMANTADINE HCL [Concomitant]
  6. DETROL [Concomitant]

REACTIONS (10)
  - ARTHRITIS [None]
  - BRONCHOSPASM [None]
  - DRUG HYPERSENSITIVITY [None]
  - DYSPNOEA [None]
  - MARKEDLY REDUCED DIETARY INTAKE [None]
  - NAUSEA [None]
  - PYREXIA [None]
  - THROAT TIGHTNESS [None]
  - VOMITING [None]
  - WHEEZING [None]
